FAERS Safety Report 8006764-2 (Version None)
Quarter: 2011Q4

REPORT INFORMATION
  Report Type: 
  Country: None (occurrence: None)
  Receive Date: 20111227
  Receipt Date: 20111215
  Transmission Date: 20120403
  Serious: Yes (Other)
  Sender: FDA-Public Use
  Company Number: US-BAYER-2011-044902

PATIENT
  Age: 29 Year
  Sex: Female
  Weight: 61 kg

DRUGS (5)
  1. ZYRTEC [Concomitant]
     Indication: SEASONAL ALLERGY
     Dosage: UNK UNK, QD
     Route: 048
     Dates: start: 20020101
  2. CLARITIN-D [Concomitant]
     Route: 048
  3. DROSPIRENONE AND ETHINYL ESTRADIOL [Suspect]
     Indication: CONTRACEPTION
     Dosage: UNK
     Dates: start: 20080701, end: 20091101
  4. YASMIN [Suspect]
     Indication: CONTRACEPTION
     Dosage: UNK
     Dates: start: 20040101, end: 20080701
  5. FLONASE [Concomitant]
     Indication: SEASONAL ALLERGY
     Dosage: UNK UNK, QD
     Route: 045
     Dates: start: 20020101

REACTIONS (4)
  - CHOLECYSTITIS ACUTE [None]
  - ABDOMINAL PAIN UPPER [None]
  - INJURY [None]
  - CHOLELITHIASIS [None]
